FAERS Safety Report 5352980-8 (Version None)
Quarter: 2007Q2

REPORT INFORMATION
  Report Type: 
  Country: None (occurrence: None)
  Receive Date: 20070607
  Receipt Date: 20070530
  Transmission Date: 20071010
  Serious: Yes (Hospitalization)
  Sender: FDA-Public Use
  Company Number: MEDI-0005801

PATIENT
  Age: 69 Year
  Sex: Male
  Weight: 72.3487 kg

DRUGS (10)
  1. ETHYOL [Suspect]
     Indication: RADIOTHERAPY
     Dosage: 500 MG, 1 IN 1 D, SUBCUTANEOUS
     Route: 058
     Dates: start: 20070124, end: 20070204
  2. ETHYOL [Suspect]
     Indication: RADIOTHERAPY
     Dosage: 500 MG, 1 IN 1 D, SUBCUTANEOUS
     Route: 058
     Dates: start: 20070204, end: 20070209
  3. RADIATION THERAPY [Concomitant]
  4. ESOPHAGITIS MIXTURE [Concomitant]
  5. LUNESTA [Concomitant]
  6. MARY'S MAGIC MOUTHWASH [Concomitant]
  7. NEXIUM [Concomitant]
  8. THORAZINE [Concomitant]
  9. TYLENOL [Concomitant]
  10. BENADRYL [Concomitant]

REACTIONS (2)
  - DRUG HYPERSENSITIVITY [None]
  - INJECTION SITE RASH [None]
